FAERS Safety Report 12907569 (Version 1)
Quarter: 2016Q4

REPORT INFORMATION
  Report Type: Spontaneous
  Country: DE (occurrence: DE)
  Receive Date: 20161103
  Receipt Date: 20161103
  Transmission Date: 20170207
  Serious: Yes (Other)
  Sender: FDA-Public Use
  Company Number: DE-BRISTOL-MYERS SQUIBB COMPANY-BMS-2016-091237

PATIENT
  Age: 73 Year
  Sex: Male

DRUGS (1)
  1. SPRYCEL [Suspect]
     Active Substance: DASATINIB
     Indication: CHRONIC MYELOID LEUKAEMIA
     Dosage: 100 MG, UNK
     Route: 065
     Dates: start: 201511

REACTIONS (10)
  - Bladder transitional cell carcinoma [Unknown]
  - Ureteral stent insertion [Unknown]
  - Pleural effusion [Unknown]
  - Atrial fibrillation [Unknown]
  - Sepsis [Unknown]
  - Urosepsis [Unknown]
  - Pyrexia [Unknown]
  - Diarrhoea [Unknown]
  - Transurethral bladder resection [Unknown]
  - Cardiac failure [Unknown]

NARRATIVE: CASE EVENT DATE: 201512
